FAERS Safety Report 23464525 (Version 1)
Quarter: 2024Q1

REPORT INFORMATION
  Report Type: Spontaneous
  Country: CN (occurrence: CN)
  Receive Date: 20240201
  Receipt Date: 20240201
  Transmission Date: 20240410
  Serious: Yes (Other)
  Sender: FDA-Public Use
  Company Number: US-Coherus Biosciences, Inc.-2024-COH-CN000041

PATIENT

DRUGS (1)
  1. TORIPALIMAB [Suspect]
     Active Substance: TORIPALIMAB
     Indication: Vaginal cancer
     Dosage: 3 MG/KG, Q2WEEKS

REACTIONS (2)
  - Lichen planus pemphigoides [Recovered/Resolved]
  - Off label use [Unknown]
